FAERS Safety Report 6932549-1 (Version None)
Quarter: 2010Q3

REPORT INFORMATION
  Report Type: 
  Country: None (occurrence: None)
  Receive Date: 20100819
  Receipt Date: 20100727
  Transmission Date: 20110219
  Serious: Yes (Other)
  Sender: FDA-Public Use
  Company Number: JP-NAPPMUNDI-MAG-2009-0001184

PATIENT
  Age: 43 Year
  Sex: Female

DRUGS (5)
  1. THEOPHYLLINE [Suspect]
     Indication: ASTHMA
     Dosage: 200 MG, BID
  2. MONTELUKAST SODIUM [Concomitant]
  3. CETIRIZINE HYDROCHLORIDE [Concomitant]
  4. SALMETEROL XINAFOATE [Concomitant]
     Route: 055
  5. FLUTICASONE PROPIONATE [Concomitant]
     Route: 055

REACTIONS (2)
  - ABORTION [None]
  - DRUG EXPOSURE DURING PREGNANCY [None]
